FAERS Safety Report 12314587 (Version 4)
Quarter: 2016Q2

REPORT INFORMATION
  Report Type: Spontaneous
  Country: JP (occurrence: JP)
  Receive Date: 20160428
  Receipt Date: 20160628
  Transmission Date: 20160815
  Serious: Yes (Death, Other)
  Sender: FDA-Public Use
  Company Number: JP-GLAXOSMITHKLINE-JP2016JPN059511

PATIENT
  Age: 95 Year
  Sex: Female
  Weight: 32 kg

DRUGS (11)
  1. LAMICTAL [Suspect]
     Active Substance: LAMOTRIGINE
     Indication: EPILEPSY
     Dosage: 25 MG, 1D
     Route: 048
     Dates: start: 20160312, end: 20160325
  2. EXCEGRAN [Concomitant]
     Active Substance: ZONISAMIDE
     Indication: CONVULSION PROPHYLAXIS
     Dosage: 150 MG, 1D
     Dates: start: 20160312, end: 20160318
  3. EXCEGRAN [Concomitant]
     Active Substance: ZONISAMIDE
     Dosage: 100 MG, 1D
     Dates: start: 20160319, end: 20160325
  4. MAGMITT [Concomitant]
     Active Substance: MAGNESIUM OXIDE
     Dosage: 81 MG, 1D
     Dates: end: 20160402
  5. EXCEGRAN [Concomitant]
     Active Substance: ZONISAMIDE
     Dosage: 50 MG, 1D
     Dates: start: 20160326, end: 20160402
  6. QUETIAPINE. [Concomitant]
     Active Substance: QUETIAPINE
     Indication: PROPHYLAXIS
     Dosage: 25 MG, PRN
     Dates: start: 20160311, end: 20160402
  7. LAMICTAL [Suspect]
     Active Substance: LAMOTRIGINE
     Dosage: 50 MG, 1D
     Route: 048
     Dates: start: 20160326, end: 20160402
  8. ZOLPIDEM TARTRATE. [Concomitant]
     Active Substance: ZOLPIDEM TARTRATE
     Dosage: 5 MG, 1D
     Dates: end: 20160402
  9. BUFFERIN [Concomitant]
     Active Substance: ASPIRIN
     Dosage: 200 MG, 1D
     Dates: end: 20160402
  10. YOKUKANSAN [Concomitant]
     Active Substance: HERBALS
     Dosage: 990 MG, 1D
     Dates: end: 20160402
  11. EXCEGRAN [Concomitant]
     Active Substance: ZONISAMIDE
     Indication: PROPHYLAXIS
     Dosage: 200 MG, 1D

REACTIONS (23)
  - Stevens-Johnson syndrome [Recovered/Resolved]
  - Cellulitis [Unknown]
  - Erythema multiforme [Recovered/Resolved]
  - Drug eruption [Recovered/Resolved]
  - Rash maculo-papular [Recovering/Resolving]
  - Thrombocytopenia [Unknown]
  - General physical health deterioration [Unknown]
  - Vessel puncture site erythema [Recovering/Resolving]
  - Oral mucosa erosion [Recovering/Resolving]
  - Generalised erythema [Recovered/Resolved]
  - Agranulocytosis [Unknown]
  - Pyrexia [Unknown]
  - Skin ulcer [Unknown]
  - Lip erosion [Recovering/Resolving]
  - Vulval disorder [Recovering/Resolving]
  - Sepsis [Fatal]
  - Infection susceptibility increased [Unknown]
  - Neutropenia [Unknown]
  - Urine output decreased [Unknown]
  - Eye discharge [Recovering/Resolving]
  - Oral mucosal erythema [Recovered/Resolved]
  - Pancytopenia [Unknown]
  - Decreased appetite [Unknown]

NARRATIVE: CASE EVENT DATE: 201604
